FAERS Safety Report 17722630 (Version 2)
Quarter: 2021Q4

REPORT INFORMATION
  Report Type: Report from Study
  Country: US (occurrence: US)
  Receive Date: 20200429
  Receipt Date: 20211021
  Transmission Date: 20220303
  Serious: Yes (Other)
  Sender: FDA-Public Use
  Company Number: US-JAZZ-JPI-P-026794

PATIENT
  Age: 44 Year
  Sex: Female
  Weight: 68.49 kg

DRUGS (2)
  1. XYREM [Suspect]
     Active Substance: SODIUM OXYBATE
     Indication: Narcolepsy
     Dosage: UNKNOWN SINGLE DOSE
     Route: 048
     Dates: start: 20110620
  2. XYREM [Suspect]
     Active Substance: SODIUM OXYBATE
     Indication: Cataplexy
     Dosage: 4.5 GRAM, BID
     Route: 048

REACTIONS (2)
  - Hysterectomy [Unknown]
  - Malaise [Unknown]

NARRATIVE: CASE EVENT DATE: 20121201
